FAERS Safety Report 9636783 (Version 2)
Quarter: 2013Q4

REPORT INFORMATION
  Report Type: Spontaneous
  Country: FR (occurrence: FR)
  Receive Date: 20131022
  Receipt Date: 20131127
  Transmission Date: 20140711
  Serious: Yes (Hospitalization)
  Sender: FDA-Public Use
  Company Number: FR-ROCHE-1289950

PATIENT
  Age: 53 Year
  Sex: Female

DRUGS (3)
  1. AVASTIN [Suspect]
     Indication: ASTROCYTOMA
     Dosage: 25 MG/ML
     Route: 041
     Dates: end: 20130614
  2. MUPHORAN [Suspect]
     Indication: ASTROCYTOMA
     Route: 051
     Dates: end: 20130614
  3. ENDOXAN [Concomitant]

REACTIONS (2)
  - Haemolytic anaemia [Not Recovered/Not Resolved]
  - Thrombocytopenia [Recovered/Resolved]
